FAERS Safety Report 9580704 (Version 2)
Quarter: 2013Q4

REPORT INFORMATION
  Report Type: Report from Study
  Country: TR (occurrence: TR)
  Receive Date: 20131002
  Receipt Date: 20131002
  Transmission Date: 20140711
  Serious: Yes (Life-Threatening, Hospitalization)
  Sender: FDA-Public Use
  Company Number: PHHO2013TR011214

PATIENT
  Sex: 0

DRUGS (7)
  1. FTY 720 [Suspect]
     Indication: MULTIPLE SCLEROSIS
     Dosage: 0.5 MG, QD
     Route: 048
     Dates: start: 20110323, end: 20130830
  2. LUSTRAL [Concomitant]
     Indication: MAJOR DEPRESSION
     Dates: start: 20070918
  3. LIORESAL [Concomitant]
     Indication: MUSCLE SPASTICITY
     Dates: start: 20090109
  4. SIRDALUD [Concomitant]
     Indication: MUSCLE SPASTICITY
     Dates: start: 20090109
  5. CIPRO [Concomitant]
     Indication: URINARY TRACT INFECTION
     Dates: start: 20130503
  6. SEROQUEL [Concomitant]
     Indication: MAJOR DEPRESSION
     Dates: start: 20120728
  7. REVITAL [Concomitant]
     Indication: HYPOVITAMINOSIS
     Dates: start: 200505

REACTIONS (2)
  - Cardio-respiratory arrest [Recovered/Resolved]
  - Appendicitis [Recovered/Resolved]
